FAERS Safety Report 8155216-8 (Version None)
Quarter: 2012Q1

REPORT INFORMATION
  Report Type: 
  Country: None (occurrence: None)
  Receive Date: 20120222
  Receipt Date: 20120214
  Transmission Date: 20120608
  Serious: Yes (Hospitalization)
  Sender: FDA-Public Use
  Company Number: US-BIOGENIDEC-2012BI003531

PATIENT
  Age: 27 Year
  Sex: Female

DRUGS (2)
  1. TYSABRI [Suspect]
     Route: 042
     Dates: start: 20110401, end: 20111111
  2. TYSABRI [Suspect]
     Indication: MULTIPLE SCLEROSIS
     Route: 042
     Dates: start: 20071221, end: 20101022

REACTIONS (6)
  - DEHYDRATION [None]
  - URINARY TRACT INFECTION [None]
  - MULTIPLE SCLEROSIS [None]
  - VOMITING [None]
  - NAUSEA [None]
  - PAIN [None]
